FAERS Safety Report 9962363 (Version 2)
Quarter: 2014Q1

REPORT INFORMATION
  Report Type: Report from Study
  Country: US (occurrence: US)
  Receive Date: 20140305
  Receipt Date: 20140305
  Transmission Date: 20141002
  Serious: Yes (Other)
  Sender: FDA-Public Use
  Company Number: US-ABBVIE-13P-163-1114194-00

PATIENT
  Age: 25 Year
  Sex: Female

DRUGS (1)
  1. HUMIRA [Suspect]
     Indication: CROHN^S DISEASE
     Dates: start: 2009

REACTIONS (5)
  - Intestinal resection [Unknown]
  - Abdominal adhesions [Unknown]
  - Injection site haemorrhage [Unknown]
  - Injection site pain [Unknown]
  - Impaired healing [Unknown]
